FAERS Safety Report 5506245-1 (Version None)
Quarter: 2007Q4

REPORT INFORMATION
  Report Type: 
  Country: None (occurrence: None)
  Receive Date: 20071101
  Receipt Date: 20071018
  Transmission Date: 20080405
  Serious: Yes (Death)
  Sender: FDA-Public Use
  Company Number: 163030ISR

PATIENT
  Age: 82 Year
  Sex: Female

DRUGS (2)
  1. FUROSEMIDE [Suspect]
     Indication: CARDIAC FAILURE
     Dosage: 120 MG, 40 MG
     Dates: end: 20070731
  2. FUROSEMIDE [Suspect]
     Indication: CARDIAC FAILURE
     Dosage: 120 MG, 40 MG
     Dates: end: 20070731

REACTIONS (4)
  - CLOSTRIDIUM DIFFICILE COLITIS [None]
  - HYPOKALAEMIA [None]
  - METABOLIC ALKALOSIS [None]
  - URINARY TRACT INFECTION [None]
